FAERS Safety Report 9191253 (Version 1)
Quarter: 2013Q1

REPORT INFORMATION
  Report Type: Not Available
  Country: GB (occurrence: GB)
  Receive Date: 20130326
  Receipt Date: 20130326
  Transmission Date: 20140127
  Serious: Yes (Other)
  Sender: FDA-Public Use
  Company Number: GB-PURDUE-USA-2013-0100256

PATIENT
  Age: 30 Year
  Sex: Male

DRUGS (10)
  1. TRAMADOL (SIMILAR TO NDA 21-745) [Suspect]
     Indication: ANALGESIC THERAPY
     Dosage: UNK
     Route: 048
     Dates: start: 19950101, end: 20130201
  2. ASPIRIN (ACETYLSALICYLIC ACID) [Suspect]
     Indication: ANALGESIC THERAPY
     Dosage: UNK
     Route: 048
     Dates: start: 19950101, end: 20130201
  3. CO-DYDRAMOL [Suspect]
     Indication: ANALGESIC THERAPY
     Dosage: UNK
     Route: 048
     Dates: start: 19950101, end: 20130201
  4. NUROFEN [Suspect]
     Indication: ANALGESIC THERAPY
     Dosage: UNK
     Route: 048
     Dates: start: 19950101, end: 20130201
  5. SOLPADEINE                         /00154101/ [Suspect]
     Indication: ANALGESIC THERAPY
     Dosage: UNK
     Route: 048
     Dates: start: 19950101, end: 20130201
  6. CODEINE PHOSPHATE [Suspect]
     Indication: ANALGESIC THERAPY
     Dosage: UNK
     Route: 048
     Dates: start: 19950101, end: 20130201
  7. DIHYDROCODEINE [Suspect]
     Indication: ANALGESIC THERAPY
     Dosage: UNK
     Route: 048
     Dates: start: 19950101, end: 20130201
  8. ANTI-ASTHMATICS [Concomitant]
     Indication: ASTHMA
  9. PROPANOLOL                         /00030001/ [Concomitant]
     Indication: PRODUCT USED FOR UNKNOWN INDICATION
  10. SERTRALINE [Concomitant]
     Indication: PRODUCT USED FOR UNKNOWN INDICATION

REACTIONS (10)
  - Drug dependence [Recovering/Resolving]
  - Drug withdrawal syndrome [Unknown]
  - Alcoholism [Unknown]
  - Ejaculation failure [Unknown]
  - Abnormal behaviour [Unknown]
  - Mood altered [Unknown]
  - Erectile dysfunction [Unknown]
  - Insomnia [Unknown]
  - Vomiting [Unknown]
  - Mental impairment [None]
